FAERS Safety Report 10402871 (Version 3)
Quarter: 2014Q3

REPORT INFORMATION
  Report Type: Spontaneous
  Country: US (occurrence: US)
  Receive Date: 20140822
  Receipt Date: 20140916
  Transmission Date: 20150326
  Serious: Yes (Hospitalization, Other)
  Sender: FDA-Public Use
  Company Number: US-BAXTER-2014BAX049403

PATIENT
  Age: 87 Year
  Sex: Female
  Weight: 58.5 kg

DRUGS (3)
  1. HEPARIN [Suspect]
     Active Substance: HEPARIN SODIUM
     Indication: PRODUCT USED FOR UNKNOWN INDICATION
     Dosage: 2000 UNITS
     Route: 040
  2. 0.9% SODIUM CHLORIDE INJECTION [Suspect]
     Active Substance: SODIUM CHLORIDE
     Indication: HAEMODIALYSIS
     Route: 010
  3. BICART 1250 [Suspect]
     Active Substance: SODIUM BICARBONATE
     Indication: HAEMODIALYSIS
     Route: 010

REACTIONS (6)
  - Nausea [Unknown]
  - Haemorrhage [Unknown]
  - Hypertension [Unknown]
  - Dyspnoea [Unknown]
  - Vomiting [Unknown]
  - Haemolysis [Unknown]

NARRATIVE: CASE EVENT DATE: 20140809
